FAERS Safety Report 5660236-9 (Version None)
Quarter: 2008Q1

REPORT INFORMATION
  Report Type: 
  Country: None (occurrence: None)
  Receive Date: 20080212
  Receipt Date: 20070518
  Transmission Date: 20080703
  Serious: Yes (Life-Threatening, Other)
  Sender: FDA-Public Use
  Company Number: MC200700415

PATIENT
  Sex: Female

DRUGS (3)
  1. ANGIOMAX [Suspect]
     Indication: PERCUTANEOUS CORONARY INTERVENTION
  2. HEPARIN [Suspect]
     Dosage: 5000 UL, BOLUS, IV BOLUS
     Route: 040
  3. HEPARIN [Suspect]
     Dosage: INTRAVENOUS
     Route: 042

REACTIONS (1)
  - CORONARY ARTERY OCCLUSION [None]
